FAERS Safety Report 8518949-7 (Version None)
Quarter: 2012Q3

REPORT INFORMATION
  Report Type: 
  Country: None (occurrence: None)
  Receive Date: 20120718
  Receipt Date: 20120713
  Transmission Date: 20120928
  Serious: Yes (Hospitalization)
  Sender: FDA-Public Use
  Company Number: DE-GLAXOSMITHKLINE-B0801665B

PATIENT
  Sex: Female
  Weight: 59 kg

DRUGS (11)
  1. NOVALGIN [Concomitant]
     Dates: start: 19930101
  2. DOXORUBICIN HCL [Suspect]
     Indication: BREAST CANCER
     Dosage: 34MG WEEKLY
     Route: 042
     Dates: start: 20120419
  3. PANTOPRAZOLE [Concomitant]
     Dosage: 20MG PER DAY
     Dates: start: 19820101
  4. UNSPECIFIED DRUG [Concomitant]
     Dates: start: 20120430
  5. SELENIUM [Concomitant]
     Dates: start: 20120430
  6. TRASTUZUMAB [Suspect]
     Indication: BREAST CANCER
     Dosage: 384MG EVERY 3 WEEKS
     Route: 042
     Dates: start: 20120419
  7. LAPATINIB [Suspect]
     Indication: BREAST CANCER
     Dosage: 750MG PER DAY
     Route: 048
     Dates: start: 20120419
  8. PACLITAXEL [Suspect]
     Indication: BREAST CANCER
     Dosage: 137MG WEEKLY
     Route: 042
     Dates: start: 20120419
  9. JUTABIS [Concomitant]
     Dosage: 5MG PER DAY
     Dates: start: 20060101
  10. MILK THISTLE [Concomitant]
     Dates: start: 20120430
  11. MAALOXAN [Concomitant]
     Dosage: 2TAB PER DAY
     Dates: start: 20120427

REACTIONS (1)
  - PARAESTHESIA ORAL [None]
